FAERS Safety Report 6366911-5 (Version None)
Quarter: 2009Q3

REPORT INFORMATION
  Report Type: 
  Country: None (occurrence: None)
  Receive Date: 20090921
  Receipt Date: 20090909
  Transmission Date: 20100115
  Serious: Yes (Hospitalization)
  Sender: FDA-Public Use
  Company Number: US-ELI_LILLY_AND_COMPANY-US200909003357

PATIENT
  Age: 75 Year
  Sex: Female

DRUGS (1)
  1. FORTEO [Suspect]
     Dosage: 20 UG, DAILY (1/D)
     Route: 058
     Dates: start: 20090826, end: 20090909

REACTIONS (3)
  - ABDOMINAL DISTENSION [None]
  - CONVULSION [None]
  - LIVER FUNCTION TEST ABNORMAL [None]
